FAERS Safety Report 10370001 (Version 1)
Quarter: 2014Q3

REPORT INFORMATION
  Report Type: Report from Study
  Country: US (occurrence: US)
  Receive Date: 20140808
  Receipt Date: 20140808
  Transmission Date: 20150326
  Serious: Yes (Hospitalization)
  Sender: FDA-Public Use
  Company Number: US-BIOGENIDEC-2014BI077598

PATIENT
  Age: 54 Year
  Sex: Female

DRUGS (4)
  1. AMPYRA [Concomitant]
     Active Substance: DALFAMPRIDINE
  2. TECFIDERA [Suspect]
     Active Substance: DIMETHYL FUMARATE
     Indication: MULTIPLE SCLEROSIS
     Route: 048
     Dates: start: 201310
  3. GABAPENTIN. [Concomitant]
     Active Substance: GABAPENTIN
  4. GENTAMICIN [Concomitant]
     Active Substance: GENTAMICIN

REACTIONS (4)
  - Hypokalaemia [Unknown]
  - Urinary tract infection [Not Recovered/Not Resolved]
  - Hyperglycaemia [Unknown]
  - Neutropenia [Unknown]

NARRATIVE: CASE EVENT DATE: 201407
